FAERS Safety Report 7166700-8 (Version None)
Quarter: 2010Q4

REPORT INFORMATION
  Report Type: 
  Country: None (occurrence: None)
  Receive Date: 20101216
  Receipt Date: 20101207
  Transmission Date: 20110411
  Serious: No
  Sender: FDA-Public Use
  Company Number: US-JNJFOC-20100907913

PATIENT
  Sex: Female
  Weight: 74.39 kg

DRUGS (3)
  1. FENTANYL CITRATE [Suspect]
     Indication: FIBROMYALGIA
     Route: 062
  2. NEURONTIN [Concomitant]
     Indication: PAIN
     Route: 048
  3. PERCOCET [Concomitant]
     Indication: PAIN
     Dosage: 10/325
     Route: 048

REACTIONS (6)
  - ASTHENIA [None]
  - DRUG DOSE OMISSION [None]
  - DRUG PRESCRIBING ERROR [None]
  - FATIGUE [None]
  - INAPPROPRIATE SCHEDULE OF DRUG ADMINISTRATION [None]
  - WRONG TECHNIQUE IN DRUG USAGE PROCESS [None]
